FAERS Safety Report 22214980 (Version 1)
Quarter: 2023Q2

REPORT INFORMATION
  Report Type: Spontaneous
  Country: US (occurrence: US)
  Receive Date: 20230415
  Receipt Date: 20230415
  Transmission Date: 20230721
  Serious: No
  Sender: FDA-Public Use
  Company Number: US-JNJFOC-20190731364

PATIENT
  Age: 67 Year
  Sex: Female
  Weight: 65.830 kg

DRUGS (1)
  1. IMODIUM MULTI-SYMPTOM RELIEF [Suspect]
     Active Substance: DIMETHICONE\LOPERAMIDE HYDROCHLORIDE
     Indication: Diarrhoea
     Dosage: 2 PILLS ONCE
     Route: 048
     Dates: start: 20190718, end: 20190718

REACTIONS (1)
  - Expired product administered [Unknown]
